FAERS Safety Report 5899249-0 (Version None)
Quarter: 2008Q3

REPORT INFORMATION
  Report Type: 
  Country: None (occurrence: None)
  Receive Date: 20080902
  Receipt Date: 20080506
  Transmission Date: 20090109
  Serious: Yes (Other)
  Sender: FDA-Public Use
  Company Number: KADN20080026

PATIENT
  Sex: Female

DRUGS (14)
  1. KADIAN [Suspect]
     Dosage: 60 MG, 1 CAP BID
     Dates: start: 20030601, end: 20060823
  2. ACTIQ [Suspect]
     Indication: PAIN IN EXTREMITY
     Dosage: 400-1200 UG PRN, BU
     Dates: start: 20020808, end: 20070615
  3. PERCOCET [Suspect]
     Dosage: 10 MG OXYCODONE/500 MG
     Dates: start: 20031002
  4. DILAUDID [Suspect]
     Dosage: 4 MG, PRN, PER ORAL
     Route: 049
     Dates: start: 20010425, end: 20060118
  5. LORTAB [Suspect]
     Dosage: 10 MG HYDROCODONE/500
     Dates: start: 20010405, end: 20050101
  6. OXYCODONE HCL [Suspect]
     Dosage: 15 MG, 1 TAB TID, PER ORAL
     Route: 049
     Dates: start: 20030507
  7. OXYCONTIN [Suspect]
     Dosage: 40 MG, 1 CAP BID, PER ORAL
     Route: 048
     Dates: start: 20010405, end: 20060712
  8. DURAGESIC-100 [Suspect]
     Dosage: 50 MCG, Q1H
  9. XANAX [Concomitant]
  10. EFFEXOR [Concomitant]
  11. GABITRIL [Concomitant]
  12. LYRICA [Concomitant]
  13. TRAZODONE HCL [Concomitant]
  14. ZONEGRAN [Concomitant]

REACTIONS (6)
  - ABSCESS ORAL [None]
  - DENTAL CARIES [None]
  - DRUG DEPENDENCE [None]
  - DRUG TOLERANCE [None]
  - PERSONALITY CHANGE [None]
  - TOOTH LOSS [None]
